FAERS Safety Report 6645891-9 (Version None)
Quarter: 2010Q1

REPORT INFORMATION
  Report Type: 
  Country: None (occurrence: None)
  Receive Date: 20100323
  Receipt Date: 20100311
  Transmission Date: 20100710
  Serious: Yes (Other)
  Sender: FDA-Public Use
  Company Number: PHHY2010IN15290

PATIENT
  Age: 48 Year
  Sex: Female
  Weight: 72 kg

DRUGS (1)
  1. CLOZAPINE [Suspect]
     Indication: SCHIZOPHRENIA

REACTIONS (5)
  - CENTRAL OBESITY [None]
  - DELUSION [None]
  - FEELING ABNORMAL [None]
  - METABOLIC SYNDROME [None]
  - SOMATOFORM DISORDER PREGNANCY [None]
